FAERS Safety Report 5369792-1 (Version None)
Quarter: 2007Q2

REPORT INFORMATION
  Report Type: 
  Country: None (occurrence: None)
  Receive Date: 20070621
  Receipt Date: 20070608
  Transmission Date: 20071010
  Serious: Yes (Hospitalization)
  Sender: FDA-Public Use
  Company Number: CERZ-11694

PATIENT
  Sex: Male
  Weight: 75 kg

DRUGS (1)
  1. CEREZYME [Suspect]
     Indication: GAUCHER'S DISEASE
     Dosage: 4800 UNITS Q2WKS IV
     Route: 042
     Dates: start: 19970901

REACTIONS (3)
  - ARTHROPATHY [None]
  - OSTEOARTHRITIS [None]
  - OSTEONECROSIS [None]
